FAERS Safety Report 11611108 (Version 3)
Quarter: 2015Q4

REPORT INFORMATION
  Report Type: Spontaneous
  Country: IT (occurrence: IT)
  Receive Date: 20151008
  Receipt Date: 20151027
  Transmission Date: 20160304
  Serious: No
  Sender: FDA-Public Use
  Company Number: IT-TEVA-594531ISR

PATIENT
  Age: 46 Year
  Sex: Female

DRUGS (1)
  1. SEASONIQUE [Suspect]
     Active Substance: ETHINYL ESTRADIOL\LEVONORGESTREL
     Indication: CONTRACEPTION

REACTIONS (11)
  - Vascular pain [Unknown]
  - Abdominal pain [Unknown]
  - Menorrhagia [Unknown]
  - Asthenia [Unknown]
  - Asthma [Unknown]
  - Reaction to colouring [Unknown]
  - Dysmenorrhoea [Unknown]
  - Fatigue [Unknown]
  - Chest pain [Unknown]
  - Vertigo [Unknown]
  - Nausea [Unknown]
